FAERS Safety Report 17052756 (Version 1)
Quarter: 2019Q4

REPORT INFORMATION
  Report Type: Spontaneous
  Country: US (occurrence: US)
  Receive Date: 20191119
  Receipt Date: 20191119
  Transmission Date: 20200122
  Serious: No
  Sender: FDA-Public Use
  Company Number: None

PATIENT
  Age: 25 Year
  Sex: Female
  Weight: 85.5 kg

DRUGS (3)
  1. ZOLOFT [Concomitant]
     Active Substance: SERTRALINE HYDROCHLORIDE
  2. NEXPLANON [Concomitant]
     Active Substance: ETONOGESTREL
  3. BUPROPION. [Suspect]
     Active Substance: BUPROPION

REACTIONS (3)
  - Fatigue [None]
  - Product substitution issue [None]
  - Weight increased [None]

NARRATIVE: CASE EVENT DATE: 20181001
